FAERS Safety Report 8550062-5 (Version None)
Quarter: 2012Q3

REPORT INFORMATION
  Report Type: 
  Country: None (occurrence: None)
  Receive Date: 20120730
  Receipt Date: 20120724
  Transmission Date: 20120928
  Serious: No
  Sender: FDA-Public Use
  Company Number: US-PFIZER INC-2012142232

PATIENT
  Age: 87 Year

DRUGS (1)
  1. TOVIAZ [Suspect]
     Dosage: UNK

REACTIONS (2)
  - DRY MOUTH [None]
  - DIZZINESS [None]
